FAERS Safety Report 6292117-4 (Version None)
Quarter: 2009Q3

REPORT INFORMATION
  Report Type: 
  Country: None (occurrence: None)
  Receive Date: 20090723
  Receipt Date: 20090723
  Transmission Date: 20100115
  Serious: Yes (Hospitalization)
  Sender: FDA-Public Use
  Company Number: None

PATIENT
  Sex: Male
  Weight: 101.6057 kg

DRUGS (12)
  1. VANDETANIB (ZD6474) 100 MG [Suspect]
     Indication: ANAPLASTIC ASTROCYTOMA
     Dosage: 100 MG DAILY ORALLY
     Route: 048
     Dates: start: 20081112
  2. DEPAKOTE [Concomitant]
  3. EFFEXOR [Concomitant]
  4. KEPPRA [Concomitant]
  5. WARFARIN SODIUM [Concomitant]
  6. ZOFRAN [Concomitant]
  7. LUNESTA [Concomitant]
  8. ATIVAN [Concomitant]
  9. MULTI-VITAMIN [Concomitant]
  10. ASHWAGANDHA [Concomitant]
  11. UROXATRAL [Concomitant]
  12. ACETOMINIOPHEN [Concomitant]

REACTIONS (5)
  - ASTHENIA [None]
  - HEADACHE [None]
  - MEMORY IMPAIRMENT [None]
  - NAUSEA [None]
  - POLLAKIURIA [None]
